FAERS Safety Report 18748580 (Version 3)
Quarter: 2021Q1

REPORT INFORMATION
  Report Type: Report from Study
  Country: IN (occurrence: IN)
  Receive Date: 20210115
  Receipt Date: 20210203
  Transmission Date: 20210419
  Serious: Yes (Death, Hospitalization)
  Sender: FDA-Public Use
  Company Number: IN-PFIZER INC-2021023764

PATIENT
  Age: 69 Year
  Sex: Male
  Weight: 74.3 kg

DRUGS (1)
  1. DACOMITINIB [Suspect]
     Active Substance: DACOMITINIB
     Indication: NON-SMALL CELL LUNG CANCER
     Dosage: 30 MG, 1X/DAY
     Route: 048
     Dates: start: 20200105, end: 20201204

REACTIONS (1)
  - Lower respiratory tract infection [Fatal]

NARRATIVE: CASE EVENT DATE: 20201205
